FAERS Safety Report 15989082 (Version 2)
Quarter: 2019Q1

REPORT INFORMATION
  Report Type: Report from Study
  Country: CN (occurrence: CN)
  Receive Date: 20190221
  Receipt Date: 20190308
  Transmission Date: 20190418
  Serious: Yes (Death)
  Sender: FDA-Public Use
  Company Number: CN-ROCHE-2266634

PATIENT
  Age: 52 Year
  Sex: Female
  Weight: 55 kg

DRUGS (8)
  1. TRASTUZUMAB. [Suspect]
     Active Substance: TRASTUZUMAB
     Dosage: 4TH CYCLE OF MAINTENANCE DOSE. ?DATE OF MOST RECENT DOSE OF TRASTUZUMAB PRIOR TO SAE ONSET 24/JAN/20
     Route: 042
     Dates: start: 20170906
  2. DOCETAXEL. [Suspect]
     Active Substance: DOCETAXEL
     Indication: HER-2 POSITIVE BREAST CANCER
     Dosage: DATE OF MOST RECENT DOSE OF DOCETAXEL PRIOR TO SAE ONSET 17/AUG /2017 Q3S
     Route: 042
     Dates: start: 20170706
  3. PERTUZUMAB. [Suspect]
     Active Substance: PERTUZUMAB
     Dosage: 4TH CYCLE OF MAINTENANCE DOSE. ?DATE OF MOST RECENT DOSE OF PERTUZUMAB PRIOR TO SAE ONSET 24/JAN/201
     Route: 042
     Dates: start: 20170906
  4. TRASTUZUMAB. [Suspect]
     Active Substance: TRASTUZUMAB
     Indication: HER-2 POSITIVE BREAST CANCER
     Dosage: AS LOADING DOSE
     Route: 042
     Dates: start: 20170706
  5. PERTUZUMAB. [Suspect]
     Active Substance: PERTUZUMAB
     Dosage: MAINTENANCE DOSE (420 MG/14 ML)
     Route: 042
  6. FERROUS SUCCINATE [Concomitant]
     Active Substance: FERROUS SUCCINATE
     Indication: ANAEMIA
     Route: 065
     Dates: start: 20170906
  7. PERTUZUMAB. [Suspect]
     Active Substance: PERTUZUMAB
     Indication: HER-2 POSITIVE BREAST CANCER
     Dosage: LOADING DOSE (FOR CYCLE 1)
     Route: 042
     Dates: start: 20170706
  8. TRASTUZUMAB. [Suspect]
     Active Substance: TRASTUZUMAB
     Dosage: MAINTENANCE DOSE. ?DATE OF MOST RECENT DOSE OF TRASTUZUMAB PRIOR TO SAE ONSET 24/JAN/2019 Q3S
     Route: 042

REACTIONS (1)
  - Lung infection [Fatal]

NARRATIVE: CASE EVENT DATE: 20190204
